FAERS Safety Report 16929042 (Version 1)
Quarter: 2019Q4

REPORT INFORMATION
  Report Type: Other
  Country: US (occurrence: US)
  Receive Date: 20191017
  Receipt Date: 20191017
  Transmission Date: 20200122
  Serious: Yes (Hospitalization, Other)
  Sender: FDA-Public Use
  Company Number: US-VISTAPHARM, INC.-VER201910-001097

PATIENT
  Age: 40 Year
  Sex: Female

DRUGS (2)
  1. HYDROCODONE AND ACETAMINOPHEN [Suspect]
     Active Substance: ACETAMINOPHEN\HYDROCODONE
     Indication: TOOTH ABSCESS
     Dosage: UNKNOWN
  2. DEXTROSE. [Concomitant]
     Active Substance: DEXTROSE
     Indication: PRODUCT USED FOR UNKNOWN INDICATION
     Dosage: UNKNOWN

REACTIONS (6)
  - Refeeding syndrome [Unknown]
  - Toxicity to various agents [Unknown]
  - Product use in unapproved indication [Unknown]
  - Hypokalaemia [Unknown]
  - Hypophosphataemia [Unknown]
  - Hypomagnesaemia [Unknown]
